FAERS Safety Report 5260741-3 (Version None)
Quarter: 2007Q1

REPORT INFORMATION
  Report Type: 
  Country: None (occurrence: None)
  Receive Date: 20061208
  Receipt Date: 20050505
  Transmission Date: 20070707
  Serious: Yes (Hospitalization)
  Sender: FDA-Public Use
  Company Number: 2005UW07036

PATIENT
  Sex: Male

DRUGS (5)
  1. NEXIUM [Suspect]
  2. HUMULIN R [Concomitant]
  3. LOPRESSOR [Concomitant]
  4. PRINIVIL [Concomitant]
  5. ALLOPURINOL [Concomitant]

REACTIONS (1)
  - PANCREATITIS ACUTE [None]
